FAERS Safety Report 6035510-7 (Version None)
Quarter: 2009Q1

REPORT INFORMATION
  Report Type: 
  Country: None (occurrence: None)
  Receive Date: 20090112
  Receipt Date: 20090112
  Transmission Date: 20090719
  Serious: Yes (Disabling)
  Sender: FDA-Public Use
  Company Number: None

PATIENT
  Sex: Female
  Weight: 61.2356 kg

DRUGS (1)
  1. AGGRENOX [Suspect]
     Indication: TRANSIENT ISCHAEMIC ATTACK
     Dosage: ONE CAPCULE SA TWICE A DAY PO
     Route: 048
     Dates: start: 20081125, end: 20081128

REACTIONS (2)
  - HEADACHE [None]
  - VOMITING [None]
